FAERS Safety Report 5831929-5 (Version None)
Quarter: 2008Q3

REPORT INFORMATION
  Report Type: 
  Country: None (occurrence: None)
  Receive Date: 20080804
  Receipt Date: 20080731
  Transmission Date: 20090109
  Serious: Yes (Other)
  Sender: FDA-Public Use
  Company Number: JP-BAYER-200811520BYL

PATIENT
  Age: 25 Year
  Sex: Female
  Weight: 45 kg

DRUGS (2)
  1. AVELOX [Suspect]
     Indication: ACNE PUSTULAR
     Dosage: TOTAL DAILY DOSE: 400 MG  UNIT DOSE: 400 MG
     Route: 048
     Dates: start: 20080629, end: 20080705
  2. AVELOX [Suspect]
     Dosage: TOTAL DAILY DOSE: 400 MG  UNIT DOSE: 400 MG
     Route: 048
     Dates: start: 20080707, end: 20080707

REACTIONS (2)
  - PYREXIA [None]
  - TOXIC SKIN ERUPTION [None]
